FAERS Safety Report 22324968 (Version 1)
Quarter: 2023Q2

REPORT INFORMATION
  Report Type: Spontaneous
  Country: US (occurrence: None)
  Receive Date: 20230513
  Receipt Date: 20230513
  Transmission Date: 20230721
  Serious: Yes (Other)
  Sender: FDA-Public Use
  Company Number: None

PATIENT
  Age: 56 Year
  Sex: Female
  Weight: 61.65 kg

DRUGS (7)
  1. OFLOXACIN [Suspect]
     Active Substance: OFLOXACIN
     Indication: Intraocular pressure increased
     Dosage: FREQUENCY : 3 TIMES A DAY;?
     Route: 047
     Dates: start: 20220927, end: 20230508
  2. vit a [Concomitant]
  3. VITAMIN E [Concomitant]
     Active Substance: .ALPHA.-TOCOPHEROL
  4. VITAMIN K [Concomitant]
     Active Substance: PHYTONADIONE
  5. VITAMINS [Concomitant]
     Active Substance: VITAMINS
  6. ASPIRIN [Concomitant]
     Active Substance: ASPIRIN
  7. collagen peptides [Concomitant]

REACTIONS (2)
  - Vision blurred [None]
  - Vision blurred [None]

NARRATIVE: CASE EVENT DATE: 20230412
